FAERS Safety Report 8821791 (Version 2)
Quarter: 2012Q4

REPORT INFORMATION
  Report Type: 
  Country: US (occurrence: US)
  Receive Date: 20121002
  Receipt Date: 20121217
  Transmission Date: 20130627
  Serious: No
  Sender: FDA-Public Use
  Company Number: US-VERTEX PHARMACEUTICAL INC.-2012-020698

PATIENT
  Age: 69 Year
  Sex: Male
  Weight: 104.31 kg

DRUGS (9)
  1. INCIVEK [Suspect]
     Indication: HEPATITIS C
     Dosage: 750 mg, tid
     Route: 048
     Dates: start: 20120808, end: 20121031
  2. PEGASYS [Concomitant]
     Indication: HEPATITIS C
     Dosage: 180 ?g, qw
     Route: 058
     Dates: start: 20120808
  3. RIBAVIRIN [Suspect]
     Indication: HEPATITIS C
     Dosage: 600 mg, bid
     Route: 048
     Dates: start: 20120808
  4. RIBAVIRIN [Suspect]
     Dosage: 600 mg, qd
  5. LISINOPRIL [Concomitant]
     Indication: HYPERTENSION
     Dosage: 20 mg, qd
  6. HYDROCODONE/APAP [Concomitant]
     Indication: BACK PAIN
     Dosage: 5/500 mg
  7. HYDROCODONE/APAP [Concomitant]
     Dosage: UNK
  8. MAXALT                             /01406501/ [Concomitant]
     Indication: MIGRAINE
     Dosage: UNK
  9. MAXALT                             /01406501/ [Concomitant]
     Indication: MIGRAINE

REACTIONS (6)
  - Visual impairment [Not Recovered/Not Resolved]
  - Dyspepsia [Not Recovered/Not Resolved]
  - Diarrhoea [Not Recovered/Not Resolved]
  - Pruritus generalised [Not Recovered/Not Resolved]
  - Nausea [Not Recovered/Not Resolved]
  - Anaemia [Not Recovered/Not Resolved]
